FAERS Safety Report 25169827 (Version 1)
Quarter: 2025Q2

REPORT INFORMATION
  Report Type: Spontaneous
  Country: AT (occurrence: None)
  Receive Date: 20250407
  Receipt Date: 20250407
  Transmission Date: 20250717
  Serious: Yes (Death, Other)
  Sender: INCYTE
  Company Number: AT-002147023-NVSC2025AT054841

PATIENT
  Age: 14 Year

DRUGS (12)
  1. RUXOLITINIB [Suspect]
     Active Substance: RUXOLITINIB
     Indication: Graft versus host disease
     Route: 065
  2. ENTOCORT [Concomitant]
     Active Substance: BUDESONIDE
     Indication: Product used for unknown indication
     Route: 065
  3. NATALIZUMAB [Concomitant]
     Active Substance: NATALIZUMAB
     Indication: Product used for unknown indication
     Route: 065
  4. ECULIZUMAB [Concomitant]
     Active Substance: ECULIZUMAB
     Indication: Thrombotic microangiopathy
     Route: 065
  5. GANCICLOVIR SODIUM [Concomitant]
     Active Substance: GANCICLOVIR SODIUM
     Indication: Cytomegalovirus infection reactivation
     Route: 065
  6. VALCYTE [Concomitant]
     Active Substance: VALGANCICLOVIR HYDROCHLORIDE
     Indication: Cytomegalovirus infection reactivation
     Route: 065
  7. LETERMOVIR [Concomitant]
     Active Substance: LETERMOVIR
     Indication: Cytomegalovirus infection reactivation
     Route: 065
  8. MARIBAVIR [Concomitant]
     Active Substance: MARIBAVIR
     Indication: Cytomegalovirus infection reactivation
     Route: 065
  9. MYCAMINE [Concomitant]
     Active Substance: MICAFUNGIN SODIUM
     Indication: Product used for unknown indication
     Route: 065
  10. TRANEXAMIC ACID [Concomitant]
     Active Substance: TRANEXAMIC ACID
     Indication: Graft versus host disease
     Route: 065
  11. KONAKION [Concomitant]
     Active Substance: PHYTONADIONE
     Indication: Graft versus host disease
     Route: 065
  12. KYBERNIN [Concomitant]
     Active Substance: ANTITHROMBIN III HUMAN
     Indication: Graft versus host disease
     Route: 065

REACTIONS (14)
  - Hepatic enzyme increased [Unknown]
  - Ascites [Recovering/Resolving]
  - Haematochezia [Unknown]
  - Blood urine present [Unknown]
  - Death [Fatal]
  - Haematemesis [Unknown]
  - Hepatitis [Unknown]
  - Hypoalbuminaemia [Unknown]
  - Hypoproteinaemia [Unknown]
  - Interleukin level [Unknown]
  - Pancreatitis [Recovering/Resolving]
  - Pleural effusion [Unknown]
  - Weight increased [Unknown]
  - Thrombocytopenia [Unknown]
